FAERS Safety Report 7610303-5 (Version None)
Quarter: 2011Q3

REPORT INFORMATION
  Report Type: 
  Country: None (occurrence: None)
  Receive Date: 20110715
  Receipt Date: 20110708
  Transmission Date: 20111222
  Serious: Yes (Death, Other)
  Sender: FDA-Public Use
  Company Number: US-CELGENEUS-163-21880-11052647

PATIENT
  Sex: Female
  Weight: 79.4 kg

DRUGS (52)
  1. ZINC OXIDE [Concomitant]
     Route: 061
     Dates: start: 20110511, end: 20110511
  2. SODIUM HYALURONATE [Concomitant]
     Route: 061
     Dates: start: 20110511, end: 20110511
  3. MAGNESIUM SULFATE [Concomitant]
     Route: 065
     Dates: start: 20110429, end: 20110429
  4. ATIVAN [Concomitant]
     Route: 065
     Dates: start: 20110415, end: 20110415
  5. LIP PETROLEUM [Concomitant]
     Route: 065
     Dates: start: 20110501, end: 20110511
  6. LASIX [Concomitant]
     Route: 065
  7. VITAMIN A+D [Concomitant]
     Route: 061
     Dates: start: 20110511, end: 20110511
  8. DURAGESIC-100 [Concomitant]
     Dosage: 25
     Route: 048
     Dates: start: 20110511, end: 20110511
  9. SPIRONOLACTONE [Concomitant]
     Route: 065
     Dates: start: 20110504, end: 20110511
  10. POTASSIUM PHOSPHATES [Concomitant]
     Route: 065
     Dates: start: 20110504, end: 20110504
  11. VITAMIN K TAB [Concomitant]
     Route: 065
     Dates: start: 20110504, end: 20110506
  12. MITOMYCIN [Concomitant]
     Route: 065
     Dates: start: 20110419, end: 20110426
  13. KETOROLAC TROMETHAMINE [Concomitant]
     Route: 065
     Dates: start: 20110415, end: 20110415
  14. DRAMAMINE [Concomitant]
     Route: 065
     Dates: start: 20100414, end: 20110511
  15. COMPAZINE [Concomitant]
     Route: 065
     Dates: start: 20110420, end: 20110503
  16. ZOSYN [Concomitant]
     Route: 065
     Dates: start: 20110420, end: 20110422
  17. MAGIC MOUTHWASH [Concomitant]
     Route: 065
     Dates: start: 20110120, end: 20110511
  18. LISINOPRIL [Concomitant]
     Route: 065
     Dates: start: 20110504, end: 20110504
  19. HUMULIN R [Concomitant]
     Route: 065
     Dates: start: 20110414, end: 20110508
  20. BENADRYL [Concomitant]
     Route: 065
     Dates: start: 20110414, end: 20110511
  21. REVLIMID [Suspect]
     Dosage: 20 MILLIGRAM
     Route: 048
     Dates: start: 20110427, end: 20110508
  22. CYTARABINE [Suspect]
     Dosage: 360 MILLIGRAM
     Route: 065
     Dates: start: 20110420
  23. PANTOPRAZOLE SODIUM [Concomitant]
     Route: 065
     Dates: start: 20110504, end: 20110511
  24. TANDEM PLUS [Concomitant]
     Route: 065
     Dates: start: 20100916, end: 20110414
  25. MEROPENEM [Concomitant]
     Route: 065
     Dates: start: 20110509, end: 20110511
  26. IDARUBICIN HCL [Suspect]
     Dosage: 12 MILLIGRAM
     Route: 065
     Dates: start: 20110420
  27. AFRIN [Concomitant]
     Route: 061
     Dates: start: 20110511, end: 20110511
  28. PROCTOCREAM HC [Concomitant]
     Route: 061
     Dates: start: 20110501, end: 20110511
  29. FAMVIR [Concomitant]
     Route: 065
     Dates: start: 20110418, end: 20110427
  30. OXYCODONE HCL [Concomitant]
     Route: 048
     Dates: start: 20110511, end: 20110511
  31. CHLORASEPTIC [Concomitant]
     Route: 061
     Dates: start: 20110423, end: 20110511
  32. VANCOMYCIN [Concomitant]
     Route: 065
     Dates: start: 20110509, end: 20110509
  33. ZOFRAN [Concomitant]
     Route: 065
     Dates: start: 20110415, end: 20110503
  34. FLAGYL [Concomitant]
     Route: 065
     Dates: start: 20110425, end: 20110427
  35. VORICONAZOLE [Concomitant]
     Route: 065
     Dates: start: 20110426, end: 20110427
  36. SODIUM CHLORIDE [Concomitant]
     Dosage: .9 PERCENT
     Route: 065
  37. POTASSIUM CHLORIDE [Concomitant]
     Route: 065
     Dates: start: 20110427, end: 20110427
  38. LIDOCAINE [Concomitant]
     Dosage: 2 PERCENT
     Route: 061
     Dates: start: 20110415, end: 20110415
  39. HYDROMORPHONE HCL [Concomitant]
     Route: 065
     Dates: start: 20110419, end: 20110419
  40. TPN [Concomitant]
     Route: 065
     Dates: start: 20110101
  41. ANTHRACYCLINE [Concomitant]
     Route: 065
  42. AMBIEN [Concomitant]
     Route: 061
     Dates: start: 20110414, end: 20110511
  43. RECOTHROM [Concomitant]
     Dosage: 20,000 UNITS
     Route: 061
     Dates: start: 20110415, end: 20110416
  44. RENAGEL [Concomitant]
     Route: 065
     Dates: start: 20110416, end: 20110419
  45. ZANTAC [Concomitant]
     Route: 065
     Dates: start: 20110418, end: 20110503
  46. PROPOFOL [Concomitant]
     Dosage: 1 PERCENT
     Route: 065
     Dates: start: 20110415, end: 20110415
  47. ACTOS [Concomitant]
     Dosage: 15 MILLIGRAM
     Route: 048
     Dates: start: 20100916, end: 20110414
  48. BENICAR [Concomitant]
     Dosage: 40 MILLIGRAM
     Route: 048
     Dates: start: 20100916, end: 20110511
  49. IMODIUM [Concomitant]
     Route: 065
     Dates: start: 20110421, end: 20110421
  50. HEPARIN [Concomitant]
     Route: 065
     Dates: start: 20110415, end: 20110415
  51. HEMOSTAT [Concomitant]
     Route: 065
     Dates: start: 20110417, end: 20110417
  52. SENNA S [Concomitant]
     Route: 065
     Dates: start: 20110414, end: 20110511

REACTIONS (8)
  - CARDIAC FAILURE CONGESTIVE [None]
  - LETHARGY [None]
  - MUCOSAL INFLAMMATION [None]
  - DISEASE PROGRESSION [None]
  - ACUTE MYELOID LEUKAEMIA [None]
  - EJECTION FRACTION DECREASED [None]
  - OEDEMA [None]
  - CONDITION AGGRAVATED [None]
